FAERS Safety Report 7668829-4 (Version None)
Quarter: 2011Q3

REPORT INFORMATION
  Report Type: 
  Country: None (occurrence: None)
  Receive Date: 20110808
  Receipt Date: 20110802
  Transmission Date: 20111222
  Serious: Yes (Other)
  Sender: FDA-Public Use
  Company Number: US-SANOFI-AVENTIS-2011SA045874

PATIENT
  Age: 62 Year
  Sex: Female
  Weight: 57.6 kg

DRUGS (6)
  1. SOLOSTAR [Suspect]
     Dates: start: 20101215
  2. LEVOXYL [Concomitant]
     Dates: start: 20110101
  3. METFORMIN HYDROCHLORIDE/PIOGLITAZONE HYDROCHLORIDE [Concomitant]
     Dosage: 500/15 MG, 2 TABLETS DAILY
  4. AVAPRO [Concomitant]
     Dates: start: 20101201
  5. LANTUS [Suspect]
     Dosage: DOSE:22 UNIT(S)
     Route: 058
     Dates: start: 20101215
  6. LIPITOR [Concomitant]

REACTIONS (2)
  - FOOT OPERATION [None]
  - INJECTION SITE HAEMORRHAGE [None]
